FAERS Safety Report 4780607-2 (Version None)
Quarter: 2005Q3

REPORT INFORMATION
  Report Type: 
  Country: None (occurrence: None)
  Receive Date: 20050926
  Receipt Date: 20050906
  Transmission Date: 20060218
  Serious: Yes (Other)
  Sender: FDA-Public Use
  Company Number: TRP_0445_2005

PATIENT
  Age: 44 Year
  Sex: Male

DRUGS (6)
  1. RIBASPHERE [Suspect]
     Indication: HEPATITIS C
     Dosage: DF PO
     Route: 048
     Dates: start: 20050527
  2. CLONAZEPAM [Concomitant]
  3. MOTRIN [Concomitant]
  4. PROZAC [Concomitant]
  5. EXTRA STRENGTH TYLENOL [Concomitant]
  6. VICODIN [Concomitant]

REACTIONS (2)
  - ANXIETY [None]
  - PARANOIA [None]
